FAERS Safety Report 19355156 (Version 3)
Quarter: 2024Q4

REPORT INFORMATION
  Report Type: Report from Study
  Country: US (occurrence: US)
  Receive Date: 20210602
  Receipt Date: 20241217
  Transmission Date: 20250114
  Serious: No
  Sender: KYOWA
  Company Number: US-KYOWAKIRIN-2021BKK008542

PATIENT

DRUGS (5)
  1. BUROSUMAB [Suspect]
     Active Substance: BUROSUMAB
     Indication: Hereditary hypophosphataemic rickets
     Dosage: 50 MG, 1X/2 WEEKS (STRENGTH 20 AND 30 MG/ML COMBINED TO ACHIEVE DOSE OF 50 MG)
     Route: 058
     Dates: start: 20190929
  2. BUROSUMAB [Suspect]
     Active Substance: BUROSUMAB
     Dosage: 50 MG, 1X/2 WEEKS (STRENGTH 20 AND 30 MG/ML COMBINED TO ACHIEVE DOSE OF 50 MG)
     Route: 058
  3. BUROSUMAB [Suspect]
     Active Substance: BUROSUMAB
     Indication: Hereditary hypophosphataemic rickets
     Dosage: 50 MG, 1X/2 WEEKS (STRENGTH 20 AND 30 MG/ML COMBINED TO ACHIEVE DOSE OF 50 MG)
     Route: 058
     Dates: start: 20190929
  4. BUROSUMAB [Suspect]
     Active Substance: BUROSUMAB
     Dosage: 50 MG, 1X/2 WEEKS (STRENGTH 20 AND 30 MG/ML COMBINED TO ACHIEVE DOSE OF 50 MG)
     Route: 058
  5. BUROSUMAB [Suspect]
     Active Substance: BUROSUMAB
     Indication: Hereditary hypophosphataemic rickets
     Dosage: UNK
     Route: 065

REACTIONS (3)
  - Knee deformity [Unknown]
  - Impaired healing [Unknown]
  - Product dose omission issue [Unknown]
